FAERS Safety Report 9728125 (Version 1)
Quarter: 2013Q4

REPORT INFORMATION
  Report Type: Spontaneous
  Country: BR (occurrence: BR)
  Receive Date: 20131204
  Receipt Date: 20131204
  Transmission Date: 20140711
  Serious: Yes (Other)
  Sender: FDA-Public Use
  Company Number: BR-ASTRAZENECA-2013SE87700

PATIENT
  Age: 65 Year
  Sex: Female
  Weight: 75 kg

DRUGS (7)
  1. ATENOLOL (UNSPECIFIED MANUFACTURER) [Suspect]
     Indication: HYPERTENSION
     Dosage: DAILY
     Route: 048
     Dates: start: 2007
  2. ATACAND HCT [Suspect]
     Indication: HYPERTENSION
     Dosage: EVERY MORNING
     Route: 048
     Dates: start: 2007
  3. CRESTOR [Suspect]
     Indication: BLOOD TRIGLYCERIDES INCREASED
     Dosage: DAILY
     Route: 048
     Dates: end: 2012
  4. GLIFAGE XR [Suspect]
     Indication: TYPE 2 DIABETES MELLITUS
     Dosage: DAILY
     Route: 048
     Dates: start: 2007, end: 201310
  5. SIMVASTATIN [Suspect]
     Indication: BLOOD TRIGLYCERIDES INCREASED
     Dosage: DAILY
     Route: 048
     Dates: start: 2007
  6. ASPIRINA PREVENT [Concomitant]
     Dosage: DAILY
     Route: 048
     Dates: start: 2007
  7. LIPLESS [Concomitant]
     Indication: BLOOD TRIGLYCERIDES INCREASED
     Dosage: DAILY
     Route: 048
     Dates: start: 2012

REACTIONS (8)
  - Blood pressure increased [Unknown]
  - Blood triglycerides increased [Recovered/Resolved]
  - Oedema peripheral [Recovering/Resolving]
  - Hyperglycaemia [Unknown]
  - Nausea [Recovered/Resolved]
  - Depression [Recovering/Resolving]
  - Insomnia [Recovered/Resolved]
  - Drug ineffective [Unknown]
